FAERS Safety Report 8658488 (Version 2)
Quarter: 2012Q4

REPORT INFORMATION
  Report Type: 
  Country: US (occurrence: US)
  Receive Date: 20120710
  Receipt Date: 20121106
  Transmission Date: 20130627
  Serious: No
  Sender: FDA-Public Use
  Company Number: US-ASTRAZENECA-2012SE43887

PATIENT
  Age: 51 Year
  Sex: Female
  Weight: 53.5 kg

DRUGS (1)
  1. SYMBICORT PMDI [Suspect]
     Indication: ASTHMA
     Dosage: 160/4.5, TWO TIMES A DAY
     Route: 055
     Dates: start: 201206

REACTIONS (6)
  - Asthma [Unknown]
  - Dyspnoea [Unknown]
  - Feeling jittery [Unknown]
  - Psychomotor hyperactivity [Unknown]
  - Nervousness [Unknown]
  - Off label use [Unknown]
